FAERS Safety Report 6054835-2 (Version None)
Quarter: 2009Q1

REPORT INFORMATION
  Report Type: 
  Country: None (occurrence: None)
  Receive Date: 20090128
  Receipt Date: 20090119
  Transmission Date: 20090719
  Serious: Yes (Death, Hospitalization)
  Sender: FDA-Public Use
  Company Number: US-ROCHE-564785

PATIENT
  Sex: Male

DRUGS (1)
  1. CAPECITABINE [Suspect]
     Indication: COLON CANCER
     Dosage: 1000 MG IN THE MORNING AND 500 MG IN THE EVENING; 2 WEEKS ON 1 WEEK OFF
     Route: 065
     Dates: start: 20071101, end: 20080321

REACTIONS (3)
  - BLOOD PRESSURE DECREASED [None]
  - COLON CANCER [None]
  - DEHYDRATION [None]
